FAERS Safety Report 18473368 (Version 3)
Quarter: 2021Q1

REPORT INFORMATION
  Report Type: Spontaneous
  Country: US (occurrence: US)
  Receive Date: 20201106
  Receipt Date: 20210129
  Transmission Date: 20210419
  Serious: No
  Sender: FDA-Public Use
  Company Number: US-BAYER-2020-240073

PATIENT
  Age: 21 Year
  Sex: Female

DRUGS (1)
  1. MIRENA [Suspect]
     Active Substance: LEVONORGESTREL
     Indication: CONTRACEPTION
     Dosage: 20 ?G PER DAY CONTINUOUSLY
     Route: 015
     Dates: start: 20190301

REACTIONS (8)
  - Food craving [None]
  - Breast tenderness [None]
  - Breast discharge [Recovered/Resolved]
  - Hormone level abnormal [None]
  - Fatigue [None]
  - Back pain [None]
  - Galactorrhoea [Recovered/Resolved]
  - Amenorrhoea [None]

NARRATIVE: CASE EVENT DATE: 2020
